FAERS Safety Report 18754164 (Version 1)
Quarter: 2021Q1

REPORT INFORMATION
  Report Type: Spontaneous
  Country: US (occurrence: US)
  Receive Date: 20210119
  Receipt Date: 20210119
  Transmission Date: 20210419
  Serious: No
  Sender: FDA-Public Use
  Company Number: US-AMGEN-USASP2021006767

PATIENT
  Age: 45 Year
  Sex: Female

DRUGS (20)
  1. HUMIRA [Concomitant]
     Active Substance: ADALIMUMAB
  2. VALACYCLOVIR [Concomitant]
     Active Substance: VALACYCLOVIR HYDROCHLORIDE
  3. BACLOFEN. [Concomitant]
     Active Substance: BACLOFEN
  4. CETRIZINE [Concomitant]
     Active Substance: CETIRIZINE HYDROCHLORIDE
  5. SULFASALAZINE. [Concomitant]
     Active Substance: SULFASALAZINE
  6. BUSPIRONE [Concomitant]
     Active Substance: BUSPIRONE HYDROCHLORIDE
  7. DOXEPIN [Concomitant]
     Active Substance: DOXEPIN
  8. DULOXETINE. [Concomitant]
     Active Substance: DULOXETINE
  9. PHENTERMINE. [Concomitant]
     Active Substance: PHENTERMINE
  10. LAMOTRIGINE. [Concomitant]
     Active Substance: LAMOTRIGINE
  11. ELIQUIS [Concomitant]
     Active Substance: APIXABAN
  12. PANTOPRAZOLE [Concomitant]
     Active Substance: PANTOPRAZOLE
  13. VENTOLIN [Concomitant]
     Active Substance: ALBUTEROL SULFATE
  14. PREGABALIN. [Concomitant]
     Active Substance: PREGABALIN
  15. MELOXICAM. [Concomitant]
     Active Substance: MELOXICAM
  16. METOPROLOL TARTRATE. [Concomitant]
     Active Substance: METOPROLOL TARTRATE
  17. MONTELUKAST [Concomitant]
     Active Substance: MONTELUKAST SODIUM
  18. TRIAMTERENE HCTZ [Concomitant]
     Active Substance: HYDROCHLOROTHIAZIDE\TRIAMTERENE
  19. HYDROCODONE/ACETAMINOPHEN [Concomitant]
     Active Substance: ACETAMINOPHEN\HYDROCODONE
  20. OTEZLA [Suspect]
     Active Substance: APREMILAST
     Indication: PSORIATIC ARTHROPATHY
     Dosage: 30 MILLIGRAM, BID
     Route: 048
     Dates: start: 2019

REACTIONS (1)
  - Night sweats [Not Recovered/Not Resolved]

NARRATIVE: CASE EVENT DATE: 202012
